FAERS Safety Report 20131176 (Version 1)
Quarter: 2021Q4

REPORT INFORMATION
  Report Type: Report from Study
  Country: CA (occurrence: CA)
  Receive Date: 20211130
  Receipt Date: 20211130
  Transmission Date: 20220303
  Serious: Yes (Other)
  Sender: FDA-Public Use
  Company Number: CA-PFIZER INC-202101599727

PATIENT
  Age: 60 Year
  Sex: Male

DRUGS (14)
  1. RITUXIMAB [Suspect]
     Active Substance: RITUXIMAB
     Indication: Transplant rejection
     Route: 065
  2. MYCOPHENOLATE MOFETIL [Suspect]
     Active Substance: MYCOPHENOLATE MOFETIL
     Dosage: 250 MG, 2 EVERY 1 DAYS
     Route: 048
  3. TACROLIMUS [Concomitant]
     Active Substance: TACROLIMUS
     Dosage: 10 MG, 1 EVERY 1 DAYS
     Route: 048
  4. AMLODIPINE [Concomitant]
     Active Substance: AMLODIPINE BESYLATE
     Route: 065
  5. CALCITRIOL [Concomitant]
     Active Substance: CALCITRIOL
     Dosage: 1 MG, 1 EVERY 1 DAYS
     Route: 048
  6. CANDESARTAN [Concomitant]
     Active Substance: CANDESARTAN
     Dosage: 16 MG, 1 EVERY 1 DAYS
     Route: 048
  7. ENTECAVIR [Concomitant]
     Active Substance: ENTECAVIR
     Dosage: 0.5 MG, 1 EVERY 2 DAYS
     Route: 048
  8. FINASTERIDE [Concomitant]
     Active Substance: FINASTERIDE
     Dosage: 5 MG, 1 EVERY 1 DAYS
     Route: 048
  9. FLOMAX [Concomitant]
     Active Substance: TAMSULOSIN HYDROCHLORIDE
     Dosage: 0.4 MG, 1 EVERY 1 DAYS
     Route: 048
  10. LABETALOL [Concomitant]
     Active Substance: LABETALOL\LABETALOL HYDROCHLORIDE
     Dosage: 200 MG, 2 EVERY 1 DAYS
     Route: 048
  11. MAGNESIUM COMPOUNDS [Concomitant]
     Dosage: 250 MG, 2 EVERY 1 DAYS
     Route: 048
  12. PREDNISONE [Concomitant]
     Active Substance: PREDNISONE
     Dosage: 5 MG, 1 EVERY 1 DAYS
     Route: 048
  13. PREGABALIN [Concomitant]
     Active Substance: PREGABALIN
  14. ROPINIROLE [Concomitant]
     Active Substance: ROPINIROLE
     Dosage: 3 MG, 1 EVERY 1 DAYS
     Route: 048

REACTIONS (19)
  - White blood cell count decreased [Unknown]
  - Blood alkaline phosphatase decreased [Unknown]
  - Blood bicarbonate decreased [Unknown]
  - Blood chloride increased [Unknown]
  - Blood creatine increased [Unknown]
  - Blood magnesium decreased [Unknown]
  - Blood uric acid increased [Unknown]
  - Glomerular filtration rate decreased [Unknown]
  - Glycosylated haemoglobin increased [Unknown]
  - Haematocrit decreased [Unknown]
  - Haemoglobin decreased [Unknown]
  - Lymphocyte count decreased [Unknown]
  - Mean cell haemoglobin concentration decreased [Unknown]
  - Mean cell volume decreased [Unknown]
  - Mean platelet volume increased [Unknown]
  - Neutrophil count increased [Unknown]
  - Platelet count decreased [Unknown]
  - Transplant rejection [Unknown]
  - Urine protein/creatinine ratio increased [Unknown]
